FAERS Safety Report 22226119 (Version 1)
Quarter: 2023Q2

REPORT INFORMATION
  Report Type: Spontaneous
  Country: IT (occurrence: IT)
  Receive Date: 20230419
  Receipt Date: 20230419
  Transmission Date: 20230722
  Serious: Yes (Other)
  Sender: FDA-Public Use
  Company Number: IT-STRIDES ARCOLAB LIMITED-2023SP005587

PATIENT
  Age: 69 Year
  Sex: Female

DRUGS (25)
  1. PREDNISOLONE [Suspect]
     Active Substance: PREDNISOLONE
     Indication: Diffuse large B-cell lymphoma
     Dosage: UNK, CYCLICAL (AS R-COMP REGIMEN WITH CYCLOPHOSPHAMIDE, VINCRISTINE, DOXORUBICIN LIPOSOMAL AND RITUX
     Route: 065
  2. PREDNISOLONE [Suspect]
     Active Substance: PREDNISOLONE
     Dosage: UNK (WITH LENALIDOMIDE)
     Route: 065
  3. PREDNISOLONE [Suspect]
     Active Substance: PREDNISOLONE
     Dosage: UNK, RESTARTED ON LENALIDOMIDE AND PREDNISOLONE
     Route: 065
  4. ETOPOSIDE [Suspect]
     Active Substance: ETOPOSIDE
     Indication: Diffuse large B-cell lymphoma
     Dosage: UNK, CYCLICAL (AS FEAM REGIMEN WITH FOTEMUSTINE, CYTARABINE AND MELPHALAN)
     Route: 065
  5. DEXAMETHASONE [Suspect]
     Active Substance: DEXAMETHASONE
     Indication: Diffuse large B-cell lymphoma
     Dosage: UNK (AS R-DHAOX REGIMEN WITH RITUXIMAB, CYTARABINE AND OXALIPLATIN)
     Route: 065
  6. BENDAMUSTINE [Suspect]
     Active Substance: BENDAMUSTINE
     Indication: Follicular lymphoma
     Dosage: UNK, CYCLICAL (AS R-BENDA WITH RITUXIMAB)
     Route: 065
  7. RITUXIMAB [Suspect]
     Active Substance: RITUXIMAB
     Indication: Follicular lymphoma
     Dosage: UNK, CYCLICAL (AS R-BENDA WITH BENDAMUSTINE)
     Route: 065
  8. RITUXIMAB [Suspect]
     Active Substance: RITUXIMAB
     Indication: Diffuse large B-cell lymphoma
     Dosage: UNK, CYCLICAL (AS R-COMP REGIMEN WITH PREDNISOLONE, CYCLOPHOSPHAMIDE, VINCRISTINE, DOXORUBICIN LIPOS
     Route: 065
  9. RITUXIMAB [Suspect]
     Active Substance: RITUXIMAB
     Dosage: UNK (AS R-DHAOX REGIMEN WITH DEXAMETHASONE, CYTARABINE AND OXALIPLATIN)
     Route: 065
  10. CYCLOPHOSPHAMIDE [Suspect]
     Active Substance: CYCLOPHOSPHAMIDE
     Indication: Diffuse large B-cell lymphoma
     Dosage: UNK, AS R-COMP REGIMEN WITH PREDNISOLONE, VINCRISTINE, DOXORUBICIN LIPOSOMAL AND RITUXIMAB
     Route: 065
  11. CYCLOPHOSPHAMIDE [Suspect]
     Active Substance: CYCLOPHOSPHAMIDE
     Dosage: UNK, WITH FLUDARABINE
     Route: 065
  12. VINCRISTINE [Suspect]
     Active Substance: VINCRISTINE
     Indication: Diffuse large B-cell lymphoma
     Dosage: UNK, CYCLICAL (AS R-COMP REGIMEN WITH PREDNISOLONE, CYCLOPHOSPHAMIDE, DOXORUBICIN LIPOSOMAL AND RITU
     Route: 065
  13. DOXORUBICIN [Suspect]
     Active Substance: DOXORUBICIN
     Indication: Diffuse large B-cell lymphoma
     Dosage: UNK, CYCLICAL (AS R-COMP REGIMEN WITH PREDNISOLONE, CYCLOPHOSPHAMIDE, VINCRISTINE, AND RITUXIMAB)
     Route: 065
  14. CYTARABINE [Suspect]
     Active Substance: CYTARABINE
     Indication: Diffuse large B-cell lymphoma
     Dosage: UNK (AS R-DHAOX REGIMEN WITH RITUXIMAB, DEXAMETHASONE AND OXALIPLATIN)
     Route: 065
  15. CYTARABINE [Suspect]
     Active Substance: CYTARABINE
     Dosage: UNK, CYCLICAL (AS FEAM REGIMEN WITH FOTEMUSTINE, ETOPOSIDE AND MELPHALAN)
     Route: 065
  16. CYTARABINE [Suspect]
     Active Substance: CYTARABINE
     Dosage: UNK (AS HAM REGIMEN WITH MITOXANTRONE)
     Route: 065
  17. OXALIPLATIN [Suspect]
     Active Substance: OXALIPLATIN
     Indication: Diffuse large B-cell lymphoma
     Dosage: UNK (AS R-DHAOX REGIMEN WITH RITUXIMAB, DEXAMETHASONE AND CYTARABINE)
     Route: 065
  18. FOTEMUSTINE [Suspect]
     Active Substance: FOTEMUSTINE
     Indication: Diffuse large B-cell lymphoma
     Dosage: UNK, CYCLICAL (AS FEAM REGIMEN WITH ETOPOSIDE, CYTARABINE AND MELPHALAN)
     Route: 065
  19. MELPHALAN [Suspect]
     Active Substance: MELPHALAN
     Indication: Diffuse large B-cell lymphoma
     Dosage: UNK, CYCLICAL (AS FEAM REGIMEN WITH FOTEMUSTINE, CYTARABINE AND ETOPOSIDE)
     Route: 065
  20. LENALIDOMIDE [Suspect]
     Active Substance: LENALIDOMIDE
     Indication: Diffuse large B-cell lymphoma
     Dosage: UNK, CYCLICAL (10 MG/DAY FOR 3 WEEKS IN CYCLES.)
     Route: 065
  21. LENALIDOMIDE [Suspect]
     Active Substance: LENALIDOMIDE
     Dosage: UNK, CYCLICAL (ADDITIONAL 4 CYCLES OF LENALIDOMIDE PLUS PREDNISOLONE)
     Route: 065
  22. LENALIDOMIDE [Suspect]
     Active Substance: LENALIDOMIDE
     Dosage: UNK, CYCLICAL (RESTARTED ON LENALIDOMIDE AND PREDNISOLONE)
     Route: 065
  23. MITOXANTRONE [Suspect]
     Active Substance: MITOXANTRONE HYDROCHLORIDE
     Indication: Diffuse large B-cell lymphoma
     Dosage: UNK (AS HAM REGIMEN WITH CYTARABINE)
     Route: 065
  24. FLUDARABINE [Suspect]
     Active Substance: FLUDARABINE PHOSPHATE
     Indication: Diffuse large B-cell lymphoma
     Dosage: UNK, WITH CYCLOPHOSPHAMIDE
     Route: 065
  25. VENETOCLAX [Suspect]
     Active Substance: VENETOCLAX
     Indication: Acute myeloid leukaemia
     Dosage: UNK
     Route: 065

REACTIONS (3)
  - Pancytopenia [Not Recovered/Not Resolved]
  - Acute myeloid leukaemia [Unknown]
  - Cytomegalovirus infection reactivation [Unknown]
